FAERS Safety Report 4589986-2 (Version None)
Quarter: 2005Q1

REPORT INFORMATION
  Report Type: 
  Country: None (occurrence: None)
  Receive Date: 20050125
  Receipt Date: 20041201
  Transmission Date: 20050727
  Serious: No
  Sender: FDA-Public Use
  Company Number: USA040772549

PATIENT
  Age: 79 Year
  Sex: Female
  Weight: 45 kg

DRUGS (2)
  1. FORTEO [Suspect]
     Indication: OSTEOPENIA
     Dates: start: 20040601
  2. ASPIRIN [Concomitant]

REACTIONS (7)
  - BLOOD CALCIUM INCREASED [None]
  - INCREASED TENDENCY TO BRUISE [None]
  - INJECTION SITE HAEMORRHAGE [None]
  - INJECTION SITE NODULE [None]
  - INJECTION SITE PAIN [None]
  - NERVOUSNESS [None]
  - WEIGHT DECREASED [None]
